FAERS Safety Report 5854921-3 (Version None)
Quarter: 2008Q3

REPORT INFORMATION
  Report Type: 
  Country: None (occurrence: None)
  Receive Date: 20080822
  Receipt Date: 20080311
  Transmission Date: 20090109
  Serious: No
  Sender: FDA-Public Use
  Company Number: US-ABBOTT-08P-163-0442113-00

PATIENT
  Sex: Female
  Weight: 46.308 kg

DRUGS (4)
  1. SYNTHROID [Suspect]
     Indication: HYPOTHYROIDISM
     Route: 048
     Dates: start: 19780101
  2. URSODIOL [Concomitant]
     Indication: BILIARY CIRRHOSIS PRIMARY
  3. ALPRAZOLAM [Concomitant]
     Indication: ANXIETY
  4. ANTIDEPRESSANTS [Concomitant]
     Indication: DEPRESSION

REACTIONS (1)
  - ALOPECIA [None]
